FAERS Safety Report 19085860 (Version 2)
Quarter: 2021Q2

REPORT INFORMATION
  Report Type: Spontaneous
  Country: US (occurrence: US)
  Receive Date: 20210402
  Receipt Date: 20210428
  Transmission Date: 20210717
  Serious: No
  Sender: FDA-Public Use
  Company Number: US-GLAXOSMITHKLINE-US2021071006

PATIENT
  Age: 35 Year
  Sex: Female

DRUGS (1)
  1. VENTOLIN HFA [Suspect]
     Active Substance: ALBUTEROL SULFATE
     Indication: ASTHMA EXERCISE INDUCED
     Dosage: 2 PUFF(S), BID
     Route: 055

REACTIONS (3)
  - Drug ineffective [Not Recovered/Not Resolved]
  - Dyspnoea exertional [Not Recovered/Not Resolved]
  - Product complaint [Unknown]

NARRATIVE: CASE EVENT DATE: 20210324
